FAERS Safety Report 5108066-0 (Version None)
Quarter: 2006Q3

REPORT INFORMATION
  Report Type: 
  Country: None (occurrence: None)
  Receive Date: 20060915
  Receipt Date: 20060831
  Transmission Date: 20061208
  Serious: Yes (Life-Threatening, Hospitalization, Other)
  Sender: FDA-Public Use
  Company Number: A-US2006-12532

PATIENT
  Age: 48 Year
  Sex: Female

DRUGS (1)
  1. TRACLEER [Suspect]
     Indication: PULMONARY HYPERTENSION
     Dosage: 125 MG, BID; ORAL; 62.5 MG, BID; ORAL
     Route: 048

REACTIONS (2)
  - ARTERIAL THROMBOSIS LIMB [None]
  - SUBCLAVIAN ARTERY THROMBOSIS [None]
